FAERS Safety Report 21269837 (Version 8)
Quarter: 2024Q1

REPORT INFORMATION
  Report Type: Spontaneous
  Country: US (occurrence: US)
  Receive Date: 20220830
  Receipt Date: 20240214
  Transmission Date: 20240410
  Serious: Yes (Other)
  Sender: FDA-Public Use
  Company Number: US-PFIZER INC-202101501550

PATIENT
  Age: 80 Year
  Sex: Female
  Weight: 81.65 kg

DRUGS (5)
  1. XELJANZ [Suspect]
     Active Substance: TOFACITINIB CITRATE
     Indication: Rheumatoid arthritis
     Dosage: 5 MG, 2X/DAY
     Route: 048
  2. PREDNISONE [Concomitant]
     Active Substance: PREDNISONE
     Indication: Musculoskeletal stiffness
     Dosage: ON A HIGH DOSE
     Route: 048
     Dates: start: 2010
  3. PREDNISONE [Concomitant]
     Active Substance: PREDNISONE
     Dosage: 5 MG, 1X/DAY
     Route: 048
     Dates: start: 2018
  4. METHOTREXATE [Concomitant]
     Active Substance: METHOTREXATE
     Indication: Rheumatoid arthritis
     Dosage: 2.5MG 3 TABLETS ON MONDAY IN THE MORNING AND 3 TABLETS AT NIGHT ONCE A WEEK
     Dates: start: 2010
  5. PROPRANOLOL HYDROCHLORIDE [Concomitant]
     Active Substance: PROPRANOLOL HYDROCHLORIDE
     Indication: Essential tremor
     Dosage: 80MG ONCE A DAY AT NIGHT
     Route: 048
     Dates: start: 2012

REACTIONS (13)
  - Spinal compression fracture [Recovering/Resolving]
  - Fall [Unknown]
  - Off label use [Unknown]
  - Product dose omission in error [Unknown]
  - Osteoporosis [Unknown]
  - Back pain [Unknown]
  - Nasopharyngitis [Recovering/Resolving]
  - Influenza [Unknown]
  - Oropharyngeal pain [Unknown]
  - Productive cough [Unknown]
  - Ear discomfort [Unknown]
  - Body height decreased [Unknown]
  - Anxiety [Unknown]

NARRATIVE: CASE EVENT DATE: 20230101
